FAERS Safety Report 17523702 (Version 1)
Quarter: 2020Q1

REPORT INFORMATION
  Report Type: Spontaneous
  Country: CA (occurrence: CA)
  Receive Date: 20200310
  Receipt Date: 20200310
  Transmission Date: 20200409
  Serious: Yes (Hospitalization, Other)
  Sender: FDA-Public Use
  Company Number: CA-PFIZER INC-2020103160

PATIENT
  Age: 69 Year
  Sex: Female

DRUGS (23)
  1. REVATIO [Suspect]
     Active Substance: SILDENAFIL CITRATE
     Dosage: 60 UG, 3X/DAY
  2. VOLIBRIS [Suspect]
     Active Substance: AMBRISENTAN
     Dosage: 10 MG, UNK
     Dates: start: 20090101
  3. ADVAIR HFA [Concomitant]
     Active Substance: FLUTICASONE PROPIONATE\SALMETEROL XINAFOATE
     Dosage: UNK
  4. FERROUS SULFATE. [Concomitant]
     Active Substance: FERROUS SULFATE
     Dosage: UNK
  5. VITAMIN D3 [Concomitant]
     Active Substance: CHOLECALCIFEROL
     Dosage: UNK
  6. MULTIVITAMINS WITH MINERALS [UMBRELLA TERM] [Concomitant]
     Dosage: UNK
  7. ALLOPURINOL. [Concomitant]
     Active Substance: ALLOPURINOL
     Dosage: UNK
  8. WELLBUTRIN [Concomitant]
     Active Substance: BUPROPION HYDROCHLORIDE
     Dosage: UNK
  9. VOLIBRIS [Suspect]
     Active Substance: AMBRISENTAN
     Dosage: 10 MG, UNK
     Dates: start: 20131115
  10. SPIRONOLACTONE. [Concomitant]
     Active Substance: SPIRONOLACTONE
     Dosage: UNK
  11. RABEPRAZOLE [Concomitant]
     Active Substance: RABEPRAZOLE
  12. LIPITOR [Concomitant]
     Active Substance: ATORVASTATIN CALCIUM
     Dosage: UNK
  13. VITAMIN K [PHYTOMENADIONE] [Concomitant]
     Dosage: UNK
  14. WARFARIN [Concomitant]
     Active Substance: WARFARIN
     Dosage: UNK
  15. UPTRAVI [Concomitant]
     Active Substance: SELEXIPAG
     Dosage: UNK
  16. LASIX [Concomitant]
     Active Substance: FUROSEMIDE
     Dosage: UNK
  17. SENOKOT [Concomitant]
     Active Substance: SENNOSIDES
     Dosage: UNK
  18. VITAMIN D [COLECALCIFEROL] [Concomitant]
     Active Substance: CHOLECALCIFEROL
     Dosage: UNK
  19. METOLAZONE. [Concomitant]
     Active Substance: METOLAZONE
     Dosage: UNK
  20. DIOVAN [Concomitant]
     Active Substance: VALSARTAN
     Dosage: UNK
  21. SPIRIVA [Concomitant]
     Active Substance: TIOTROPIUM BROMIDE MONOHYDRATE
     Dosage: UNK
  22. IRON [Concomitant]
     Active Substance: IRON
     Dosage: UNK
  23. OESTROGEN [Concomitant]
     Dosage: UNK

REACTIONS (16)
  - Fatigue [Not Recovered/Not Resolved]
  - Constipation [Not Recovered/Not Resolved]
  - Abdominal abscess [Not Recovered/Not Resolved]
  - Gastrointestinal pain [Not Recovered/Not Resolved]
  - Malaise [Unknown]
  - Pain [Not Recovered/Not Resolved]
  - Pain in jaw [Recovering/Resolving]
  - Chest pain [Not Recovered/Not Resolved]
  - Peripheral swelling [Not Recovered/Not Resolved]
  - Gout [Not Recovered/Not Resolved]
  - Oral pain [Not Recovered/Not Resolved]
  - Toothache [Not Recovered/Not Resolved]
  - Weight decreased [Unknown]
  - Dyspnoea [Recovering/Resolving]
  - Off label use [Unknown]
  - Pain in extremity [Not Recovered/Not Resolved]

NARRATIVE: CASE EVENT DATE: 20180917
